FAERS Safety Report 10533008 (Version 1)
Quarter: 2014Q4

REPORT INFORMATION
  Report Type: Report from Study
  Country: US (occurrence: US)
  Receive Date: 20141022
  Receipt Date: 20141022
  Transmission Date: 20150529
  Serious: Yes (Other)
  Sender: FDA-Public Use
  Company Number: US-AMGEN-USASL2014080087

PATIENT
  Age: 78 Year
  Sex: Female

DRUGS (1)
  1. PROLIA [Suspect]
     Active Substance: DENOSUMAB
     Indication: OSTEOPOROSIS POSTMENOPAUSAL
     Dosage: UNK
     Route: 065
     Dates: start: 20140508

REACTIONS (6)
  - Mitral valve disease [Unknown]
  - Heart rate increased [Recovering/Resolving]
  - Dry eye [Recovering/Resolving]
  - Cardiac disorder [Unknown]
  - Blood pressure increased [Unknown]
  - Eye infection [Recovering/Resolving]
